FAERS Safety Report 9347199 (Version 2)
Quarter: 2013Q3

REPORT INFORMATION
  Report Type: Report from Study
  Country: US (occurrence: US)
  Receive Date: 20130613
  Receipt Date: 20130808
  Transmission Date: 20140515
  Serious: Yes (Hospitalization)
  Sender: FDA-Public Use
  Company Number: US-ELI_LILLY_AND_COMPANY-US201306001719

PATIENT
  Age: 74 Year
  Sex: Female
  Weight: 65.76 kg

DRUGS (10)
  1. TERIPARATIDE [Suspect]
     Indication: OSTEOPOROSIS
     Dosage: UNK UNK, QD
     Dates: start: 201201, end: 20120628
  2. TERIPARATIDE [Suspect]
     Dosage: UNK UNK, QOD
  3. TERIPARATIDE [Suspect]
     Dosage: UNK UNK, QD
     Dates: start: 20121025
  4. CALCIUM [Suspect]
     Indication: OSTEOPOROSIS
     Dosage: 750 MG, QD
  5. VITAMIN D [Suspect]
     Dosage: 2000 U, QD
  6. LOSARTIN [Concomitant]
     Dosage: UNK
  7. PEPCID AC [Concomitant]
     Dosage: UNK
  8. PREDNISONE [Concomitant]
     Dosage: UNK
  9. SIMVASTIN [Concomitant]
     Dosage: UNK
  10. CITRACAL + D [Concomitant]
     Dosage: 600/400, 1 QHS
     Route: 048

REACTIONS (10)
  - Hypercalcaemia [Recovered/Resolved]
  - Nephrolithiasis [Unknown]
  - Weight decreased [Unknown]
  - Decreased appetite [Unknown]
  - Nausea [Unknown]
  - Hypertension [Unknown]
  - Diarrhoea [Unknown]
  - Malaise [Unknown]
  - Intentional drug misuse [Unknown]
  - Drug prescribing error [Unknown]
